FAERS Safety Report 9019503 (Version 1)
Quarter: 2013Q1

REPORT INFORMATION
  Report Type: Spontaneous
  Country: FI (occurrence: FI)
  Receive Date: 20130118
  Receipt Date: 20130118
  Transmission Date: 20140127
  Serious: Yes (Disabling)
  Sender: FDA-Public Use
  Company Number: FI-ABBOTT-13P-055-1034138-00

PATIENT
  Sex: Male

DRUGS (5)
  1. HUMIRA [Suspect]
     Indication: RHEUMATOID ARTHRITIS
  2. BURANA [Concomitant]
     Indication: PRODUCT USED FOR UNKNOWN INDICATION
     Route: 048
  3. LANSOPRAZOLE HEXAL [Concomitant]
     Indication: PRODUCT USED FOR UNKNOWN INDICATION
     Dosage: DAILY DOSE: 15-30 MG
     Route: 048
  4. KALCIPOS-D [Concomitant]
     Indication: BONE DISORDER
     Dosage: DAILY DOSE: 1-2X1
     Route: 048
  5. KALCIPOS-D [Concomitant]
     Indication: PROPHYLAXIS

REACTIONS (3)
  - Tooth disorder [Not Recovered/Not Resolved]
  - Periodontitis [Not Recovered/Not Resolved]
  - Lipids increased [Unknown]
